FAERS Safety Report 14323811 (Version 2)
Quarter: 2018Q1

REPORT INFORMATION
  Report Type: Spontaneous
  Country: JP (occurrence: JP)
  Receive Date: 20171226
  Receipt Date: 20180102
  Transmission Date: 20180509
  Serious: Yes (Other)
  Sender: FDA-Public Use
  Company Number: JP-ROCHE-2044468

PATIENT
  Age: 59 Year
  Sex: Female

DRUGS (7)
  1. LUCENTIS [Suspect]
     Active Substance: RANIBIZUMAB
     Indication: AGE-RELATED MACULAR DEGENERATION
     Route: 031
  2. AFLIBERCEPT [Concomitant]
     Active Substance: AFLIBERCEPT
     Route: 065
  3. VERTEPORFIN [Suspect]
     Active Substance: VERTEPORFIN
     Indication: AGE-RELATED MACULAR DEGENERATION
     Route: 042
  4. AFLIBERCEPT [Concomitant]
     Active Substance: AFLIBERCEPT
     Route: 065
  5. AFLIBERCEPT [Concomitant]
     Active Substance: AFLIBERCEPT
     Route: 065
  6. AFLIBERCEPT [Concomitant]
     Active Substance: AFLIBERCEPT
     Indication: AGE-RELATED MACULAR DEGENERATION
     Route: 065
  7. AFLIBERCEPT [Concomitant]
     Active Substance: AFLIBERCEPT
     Route: 065

REACTIONS (3)
  - Age-related macular degeneration [Unknown]
  - Therapeutic product ineffective [Unknown]
  - Disease progression [Unknown]
